FAERS Safety Report 7762622-X (Version None)
Quarter: 2011Q3

REPORT INFORMATION
  Report Type: 
  Country: None (occurrence: None)
  Receive Date: 20110920
  Receipt Date: 20110915
  Transmission Date: 20111222
  Serious: Yes (Other)
  Sender: FDA-Public Use
  Company Number: CH-GLAXOSMITHKLINE-B0736835A

PATIENT
  Sex: Male
  Weight: 78 kg

DRUGS (5)
  1. LISINOPRIL [Concomitant]
     Indication: HYPERTENSION
     Dosage: 2.5MG PER DAY
     Route: 048
  2. CALCIUM SANDOZ [Concomitant]
     Indication: PRODUCT USED FOR UNKNOWN INDICATION
     Route: 048
  3. FORADIL [Concomitant]
     Indication: ASTHMA
     Dosage: 12MCG PER DAY
     Route: 055
  4. SERETIDE [Suspect]
     Indication: ASTHMA
     Dosage: 125MCG TWICE PER DAY
     Route: 055
     Dates: start: 20110101
  5. PULMICORT [Concomitant]
     Indication: ASTHMA
     Dosage: 200MCG PER DAY
     Route: 055

REACTIONS (1)
  - VISUAL IMPAIRMENT [None]
